FAERS Safety Report 9411525 (Version 1)
Quarter: 2013Q3

REPORT INFORMATION
  Report Type: Spontaneous
  Country: CN (occurrence: CN)
  Receive Date: 20130722
  Receipt Date: 20130722
  Transmission Date: 20140515
  Serious: Yes (Other)
  Sender: FDA-Public Use
  Company Number: CN-ASTELLAS-2013JP007739

PATIENT
  Sex: Male
  Weight: 3 kg

DRUGS (2)
  1. PROGRAF [Suspect]
     Dosage: 2.5 MG, UNKNOWN/D
     Route: 064
  2. CELLCEPT                           /01275102/ [Concomitant]
     Route: 064

REACTIONS (2)
  - Anaphylactic reaction [Unknown]
  - Pyrexia [Unknown]
